FAERS Safety Report 19932332 (Version 12)
Quarter: 2022Q3

REPORT INFORMATION
  Report Type: Report from Study
  Country: NL (occurrence: NL)
  Receive Date: 20211008
  Receipt Date: 20220906
  Transmission Date: 20221026
  Serious: Yes (Hospitalization)
  Sender: FDA-Public Use
  Company Number: NVSC2021NL226193

PATIENT
  Age: 60 Year
  Sex: Female
  Weight: 78.7 kg

DRUGS (12)
  1. RINETERKIB [Suspect]
     Active Substance: RINETERKIB
     Indication: Colorectal cancer
     Dosage: 100 MG, Q4W
     Route: 042
     Dates: start: 20210909, end: 20210909
  2. RINETERKIB [Suspect]
     Active Substance: RINETERKIB
     Dosage: UNK
     Route: 042
     Dates: start: 20211007, end: 20211011
  3. RINETERKIB [Suspect]
     Active Substance: RINETERKIB
     Dosage: 50 MG, QD
     Route: 042
     Dates: start: 20211019
  4. DABRAFENIB [Suspect]
     Active Substance: DABRAFENIB
     Indication: Colorectal cancer
     Dosage: 150 MG, BID
     Route: 048
     Dates: start: 20210909, end: 20210930
  5. DABRAFENIB [Suspect]
     Active Substance: DABRAFENIB
     Dosage: UNK
     Route: 048
     Dates: start: 20211007, end: 20211011
  6. DABRAFENIB [Suspect]
     Active Substance: DABRAFENIB
     Dosage: 100 MG, BID
     Route: 048
     Dates: start: 20211019
  7. POLYETHYLENE GLYCOLS [Concomitant]
     Active Substance: POLYETHYLENE GLYCOLS
     Indication: General physical condition
     Dosage: UNK
     Route: 065
     Dates: start: 20210812, end: 20210930
  8. AMLODIPINE BESYLATE [Concomitant]
     Active Substance: AMLODIPINE BESYLATE
     Indication: Hypertension
     Dosage: UNK
     Route: 065
     Dates: start: 20210812
  9. TINZAPARIN [Concomitant]
     Active Substance: TINZAPARIN
     Indication: Thrombosis prophylaxis
     Dosage: UNK
     Route: 065
     Dates: start: 20210907
  10. COSMETICS [Concomitant]
     Active Substance: COSMETICS
     Indication: Pruritus
     Dosage: UNK
     Route: 065
     Dates: start: 20210916, end: 20211004
  11. CIMETIDINE [Concomitant]
     Active Substance: CIMETIDINE
     Indication: Prophylaxis
     Dosage: UNK
     Route: 065
     Dates: start: 20210911
  12. LOPERAMIDE [Concomitant]
     Active Substance: LOPERAMIDE
     Indication: Diarrhoea
     Dosage: UNK
     Route: 065
     Dates: start: 20210923, end: 20211002

REACTIONS (1)
  - Productive cough [Recovered/Resolved]

NARRATIVE: CASE EVENT DATE: 20210930
